FAERS Safety Report 24689047 (Version 2)
Quarter: 2025Q3

REPORT INFORMATION
  Report Type: Spontaneous
  Country: CN (occurrence: CN)
  Receive Date: 20241203
  Receipt Date: 20250810
  Transmission Date: 20251021
  Serious: Yes (Disabling)
  Sender: ALEXION PHARMACEUTICALS
  Company Number: CN-ASTRAZENECA-202411CHN025493CN

PATIENT
  Age: 89 Year
  Sex: Male

DRUGS (2)
  1. OSIMERTINIB [Suspect]
     Active Substance: OSIMERTINIB
     Dosage: 80 MILLIGRAM, QD
     Dates: start: 20191120, end: 20210713
  2. GEFITINIB [Suspect]
     Active Substance: GEFITINIB
     Dosage: 250 MILLIGRAM, QD
     Dates: start: 20190711, end: 20201120

REACTIONS (1)
  - Renal disorder [Not Recovered/Not Resolved]
